FAERS Safety Report 8387712-2 (Version None)
Quarter: 2012Q2

REPORT INFORMATION
  Report Type: 
  Country: None (occurrence: None)
  Receive Date: 20120525
  Receipt Date: 20120515
  Transmission Date: 20120825
  Serious: Yes (Hospitalization)
  Sender: FDA-Public Use
  Company Number: US-ELI_LILLY_AND_COMPANY-US201103004095

PATIENT
  Sex: Female

DRUGS (12)
  1. CALCIUM [Concomitant]
  2. ASPIRIN [Concomitant]
  3. FORTEO [Suspect]
     Indication: OSTEOPOROSIS
     Dosage: 20 UG, QD
     Route: 065
     Dates: end: 20110201
  4. ANTIHYPERTENSIVES [Concomitant]
     Indication: BLOOD PRESSURE
  5. MAGNESIUM [Concomitant]
  6. FORTEO [Suspect]
     Dosage: 20 UG, QD
     Route: 065
     Dates: start: 20111001
  7. FORTEO [Suspect]
     Dosage: 20 UG, QD
  8. AMLODIPINE BESYLATE [Concomitant]
  9. FORTEO [Suspect]
     Dosage: 20 UG, QD
     Route: 065
  10. VITAMIN D [Concomitant]
  11. FORTEO [Suspect]
     Dosage: 20 UG, QD
     Route: 065
     Dates: start: 20110401
  12. LISINOPRIL [Concomitant]

REACTIONS (21)
  - BLOOD PRESSURE INCREASED [None]
  - BONE DISORDER [None]
  - NAIL DISORDER [None]
  - HEART RATE INCREASED [None]
  - MEMORY IMPAIRMENT [None]
  - SURGERY [None]
  - EXOSTOSIS [None]
  - RESTLESS LEGS SYNDROME [None]
  - VISUAL ACUITY REDUCED [None]
  - SLEEP DISORDER DUE TO A GENERAL MEDICAL CONDITION [None]
  - MYALGIA [None]
  - PRURITUS [None]
  - ARTHRALGIA [None]
  - BLOOD CALCIUM INCREASED [None]
  - VISION BLURRED [None]
  - BONE PAIN [None]
  - NAIL GROWTH ABNORMAL [None]
  - MOVEMENT DISORDER [None]
  - INSOMNIA [None]
  - ASTHENIA [None]
  - GAIT DISTURBANCE [None]
